FAERS Safety Report 5885700-9 (Version None)
Quarter: 2008Q3

REPORT INFORMATION
  Report Type: 
  Country: None (occurrence: None)
  Receive Date: 20080912
  Receipt Date: 20080811
  Transmission Date: 20090109
  Serious: Yes (Other)
  Sender: FDA-Public Use
  Company Number: DSM-2008-00738

PATIENT
  Age: 53 Year
  Sex: Female
  Weight: 74 kg

DRUGS (2)
  1. OLMETEC (OLMESARTAN MEDOXOMIL) (20 MILLIGRAM, TABLET) (OLMESARTAN MEDO [Suspect]
     Indication: HYPERTENSION
     Dosage: 20 MG (20 MG, 1 IN 1 D D), ORAL
     Route: 048
     Dates: start: 20080610, end: 20080701
  2. BILOL (BISOPROLOL FUMARATE) [Concomitant]

REACTIONS (2)
  - ARTHRITIS [None]
  - TENDONITIS [None]
